FAERS Safety Report 7927948-5 (Version None)
Quarter: 2011Q4

REPORT INFORMATION
  Report Type: 
  Country: None (occurrence: None)
  Receive Date: 20111118
  Receipt Date: 20111114
  Transmission Date: 20120403
  Serious: Yes (Other)
  Sender: FDA-Public Use
  Company Number: US-PFIZER INC-2011271889

PATIENT
  Sex: Male

DRUGS (3)
  1. PRISTIQ [Suspect]
     Indication: DEPRESSION
     Dosage: 50 MG, 1X/DAY
     Route: 048
     Dates: start: 20111109
  2. EFFEXOR XR [Suspect]
     Dosage: UNK
  3. EFFEXOR [Suspect]
     Indication: DEPRESSION
     Dosage: UNK
     Dates: end: 20110101

REACTIONS (4)
  - EMOTIONAL DISORDER [None]
  - GAIT DISTURBANCE [None]
  - WITHDRAWAL SYNDROME [None]
  - ACTIVITIES OF DAILY LIVING IMPAIRED [None]
